FAERS Safety Report 18210877 (Version 1)
Quarter: 2020Q3

REPORT INFORMATION
  Report Type: Spontaneous
  Country: US (occurrence: US)
  Receive Date: 20200830
  Receipt Date: 20200830
  Transmission Date: 20201103
  Serious: No
  Sender: FDA-Public Use
  Company Number: US-ENDO PHARMACEUTICALS INC-2020-003953

PATIENT

DRUGS (3)
  1. PREDNISONE. [Suspect]
     Active Substance: PREDNISONE
     Indication: ECZEMA
     Dosage: UNK UNKNOWN, FOR FIVE DAYS
     Route: 065
  2. EUCRISA [Concomitant]
     Active Substance: CRISABOROLE
     Indication: ECZEMA EYELIDS
  3. TRIAMCINOLONE [Concomitant]
     Active Substance: TRIAMCINOLONE
     Indication: ECZEMA

REACTIONS (1)
  - Eczema [Unknown]
